FAERS Safety Report 24154570 (Version 2)
Quarter: 2024Q3

REPORT INFORMATION
  Report Type: Spontaneous
  Country: SE (occurrence: SE)
  Receive Date: 20240731
  Receipt Date: 20240919
  Transmission Date: 20241017
  Serious: Yes (Other)
  Sender: NOVO NORDISK
  Company Number: SE-NOVOPROD-1259000

PATIENT

DRUGS (1)
  1. NOVORAPID [Suspect]
     Active Substance: INSULIN ASPART
     Indication: Product used for unknown indication
     Dosage: UNK

REACTIONS (2)
  - Blood glucose increased [Recovered/Resolved]
  - Device physical property issue [Recovered/Resolved]
